FAERS Safety Report 4341857-2 (Version None)
Quarter: 2004Q2

REPORT INFORMATION
  Report Type: 
  Country: None (occurrence: None)
  Receive Date: 20040415
  Receipt Date: 20040331
  Transmission Date: 20050107
  Serious: Yes (Death)
  Sender: FDA-Public Use
  Company Number: USA040463754

PATIENT
  Age: 48 Year
  Sex: Male

DRUGS (1)
  1. ZYPREXA [Suspect]
     Indication: PSYCHOTIC DISORDER
     Dosage: 20 MG DAY
     Dates: start: 20010101

REACTIONS (6)
  - COMA [None]
  - DRUG LEVEL INCREASED [None]
  - FATIGUE [None]
  - MAJOR DEPRESSION [None]
  - MARKEDLY REDUCED DIETARY INTAKE [None]
  - WEIGHT DECREASED [None]
